FAERS Safety Report 8469676-6 (Version None)
Quarter: 2012Q2

REPORT INFORMATION
  Report Type: 
  Country: None (occurrence: None)
  Receive Date: 20120626
  Receipt Date: 20120611
  Transmission Date: 20120825
  Serious: Yes (Other)
  Sender: FDA-Public Use
  Company Number: DK-SPECTRUM PHARMACEUTICALS, INC.-12-F-DK-00093

PATIENT
  Sex: Female

DRUGS (4)
  1. DOCETAXEL [Suspect]
     Indication: BREAST CANCER
     Dosage: UNK
     Route: 065
  2. FLUOROURACIL [Suspect]
     Indication: BREAST CANCER
     Dosage: UNK
     Route: 065
  3. CYCLOPHOSPHAMIDE [Suspect]
     Indication: BREAST CANCER
     Dosage: UNK
     Route: 065
  4. EPIRUBICIN [Suspect]
     Indication: BREAST CANCER
     Dosage: UNK
     Route: 065

REACTIONS (3)
  - SENSORY DISTURBANCE [None]
  - PAIN [None]
  - ACTIVITIES OF DAILY LIVING IMPAIRED [None]
